FAERS Safety Report 7583445-0 (Version None)
Quarter: 2011Q2

REPORT INFORMATION
  Report Type: 
  Country: None (occurrence: None)
  Receive Date: 20110628
  Receipt Date: 20110628
  Transmission Date: 20111010
  Serious: No
  Sender: FDA-Public Use
  Company Number: None

PATIENT
  Sex: Male
  Weight: 53 kg

DRUGS (22)
  1. BEVACIZUMAB (RHUMAB VEGF) [Suspect]
     Dosage: 800MG
  2. OMEPRAZOLE [Concomitant]
  3. VICODIN [Concomitant]
  4. ZOCOR [Concomitant]
  5. FLONASE [Concomitant]
  6. NICODERM [Concomitant]
  7. ONDANSETRON [Concomitant]
  8. ALBUTEROL [Concomitant]
  9. COMBIVENT [Concomitant]
  10. FOLIC ACID [Concomitant]
  11. MUCINEX [Concomitant]
  12. PEMETREXED [Suspect]
     Dosage: 800MG
  13. COUMADIN [Concomitant]
  14. MEGESTROL ACETATE [Concomitant]
  15. ADVAIR DISKUS 100/50 [Concomitant]
  16. ALPRAZOLAM [Concomitant]
  17. DECADRON [Concomitant]
  18. ENSURE PLUS [Concomitant]
  19. SPRIVA [Concomitant]
  20. VIT B 12 [Concomitant]
  21. PLETAL [Concomitant]
  22. TYLENOL-500 [Concomitant]

REACTIONS (1)
  - HAEMORRHAGE [None]
